FAERS Safety Report 8278980-6 (Version None)
Quarter: 2012Q2

REPORT INFORMATION
  Report Type: 
  Country: None (occurrence: None)
  Receive Date: 20120412
  Receipt Date: 20110427
  Transmission Date: 20120825
  Serious: No
  Sender: FDA-Public Use
  Company Number: US-ASTRAZENECA-2011SE24419

PATIENT
  Sex: Female

DRUGS (1)
  1. NEXIUM [Suspect]
     Indication: GASTROOESOPHAGEAL REFLUX DISEASE
     Route: 048

REACTIONS (6)
  - PERIPHERAL COLDNESS [None]
  - CONSTIPATION [None]
  - ARTHRITIS [None]
  - FEELING COLD [None]
  - DIARRHOEA [None]
  - BURNING SENSATION [None]
